FAERS Safety Report 6563965-8 (Version None)
Quarter: 2010Q1

REPORT INFORMATION
  Report Type: 
  Country: None (occurrence: None)
  Receive Date: 20100131
  Receipt Date: 20100118
  Transmission Date: 20100710
  Serious: Yes (Other)
  Sender: FDA-Public Use
  Company Number: US-JNJFOC-20100111222

PATIENT
  Age: 79 Year
  Sex: Female
  Weight: 99.79 kg

DRUGS (6)
  1. ST. JOSEPH ENTERIC COATED [Suspect]
     Indication: PROPHYLAXIS
     Route: 048
  2. ROLAIDS [Suspect]
     Indication: DRUG USE FOR UNKNOWN INDICATION
  3. ADVAIR DISKUS 100/50 [Concomitant]
     Indication: ASTHMA
  4. DIOVAN [Concomitant]
     Indication: BLOOD PRESSURE ABNORMAL
  5. SPIRIVA [Concomitant]
     Indication: ASTHMA
  6. CARDIZEM CD [Concomitant]
     Indication: BLOOD PRESSURE ABNORMAL

REACTIONS (2)
  - KIDNEY INFECTION [None]
  - PRODUCT QUALITY ISSUE [None]
